FAERS Safety Report 13742669 (Version 1)
Quarter: 2017Q3

REPORT INFORMATION
  Report Type: Report from Study
  Country: BR (occurrence: BR)
  Receive Date: 20170711
  Receipt Date: 20170711
  Transmission Date: 20171127
  Serious: Yes (Other)
  Sender: FDA-Public Use
  Company Number: PHHY2017BR101194

PATIENT
  Sex: Male
  Weight: 91 kg

DRUGS (5)
  1. DIOVAN [Suspect]
     Active Substance: VALSARTAN
     Indication: HYPERTENSION
     Dosage: 80 MG, QD
     Route: 048
  2. VALSARTANA [Suspect]
     Active Substance: VALSARTAN
     Indication: HYPERTENSION
     Dosage: 320 MG, UNK
     Route: 065
  3. DIOVAN [Suspect]
     Active Substance: VALSARTAN
     Dosage: 0.5 DF (320 MG) (WHEN BLOOD PRESSURE WAS GOOD)
     Route: 048
  4. DIOVAN [Suspect]
     Active Substance: VALSARTAN
     Dosage: 320 MG, IN THE MORNING
     Route: 048
     Dates: start: 2014
  5. DIOVAN [Suspect]
     Active Substance: VALSARTAN
     Dosage: 160 MG, QD
     Route: 048

REACTIONS (9)
  - Malaise [Unknown]
  - Blood pressure increased [Recovering/Resolving]
  - Sleep disorder [Unknown]
  - Arrhythmia [Recovering/Resolving]
  - Headache [Not Recovered/Not Resolved]
  - Dyspnoea [Unknown]
  - Weight decreased [Unknown]
  - Wrong technique in product usage process [Unknown]
  - Discomfort [Unknown]
